FAERS Safety Report 15975407 (Version 2)
Quarter: 2019Q2

REPORT INFORMATION
  Report Type: Spontaneous
  Country: JP (occurrence: JP)
  Receive Date: 20190218
  Receipt Date: 20190423
  Transmission Date: 20190711
  Serious: Yes (Hospitalization)
  Sender: FDA-Public Use
  Company Number: JP-ELI_LILLY_AND_COMPANY-JP201902003378

PATIENT
  Age: 83 Year
  Sex: Male
  Weight: 65 kg

DRUGS (10)
  1. ROSUVASTATIN. [Concomitant]
     Active Substance: ROSUVASTATIN
  2. CARVEDILOL. [Concomitant]
     Active Substance: CARVEDILOL
  3. LANSOPRAZOLE. [Concomitant]
     Active Substance: LANSOPRAZOLE
     Route: 048
  4. TOVIAZ [Concomitant]
     Active Substance: FESOTERODINE FUMARATE
  5. RIVASTIGMINE. [Concomitant]
     Active Substance: RIVASTIGMINE
     Route: 062
  6. CABAGIN U [Concomitant]
  7. ZALUTIA [Suspect]
     Active Substance: TADALAFIL
     Indication: BENIGN PROSTATIC HYPERPLASIA
     Dosage: 5 MG, DAILY
     Route: 048
     Dates: end: 20181108
  8. MEMARY [Concomitant]
     Active Substance: MEMANTINE HYDROCHLORIDE
     Route: 048
  9. ANGELICA ACUTILOBA ROOT;ATRACTYLODES SPP. RHI [Concomitant]
  10. AMLODIPINE [Concomitant]
     Active Substance: AMLODIPINE BESYLATE

REACTIONS (3)
  - Cerebral infarction [Recovering/Resolving]
  - Cerebral arteriosclerosis [Unknown]
  - Thrombotic cerebral infarction [Unknown]

NARRATIVE: CASE EVENT DATE: 20181108
